FAERS Safety Report 7122413-X (Version None)
Quarter: 2010Q4

REPORT INFORMATION
  Report Type: 
  Country: None (occurrence: None)
  Receive Date: 20101122
  Receipt Date: 20101122
  Transmission Date: 20110411
  Serious: Yes (Hospitalization, Other)
  Sender: FDA-Public Use
  Company Number: None

PATIENT
  Age: 37 Year
  Sex: Male
  Weight: 108 kg

DRUGS (32)
  1. CRESTOR [Suspect]
     Indication: ACUTE RESPIRATORY DISTRESS SYNDROME
     Dosage: 40 MG ORALLY/PG TIMES ONE ; 20 MG ORALLY/PG QD
     Route: 048
     Dates: start: 20101109, end: 20101110
  2. CRESTOR [Suspect]
     Indication: SEPSIS
     Dosage: 40 MG ORALLY/PG TIMES ONE ; 20 MG ORALLY/PG QD
     Route: 048
     Dates: start: 20101109, end: 20101110
  3. CRESTOR [Suspect]
     Indication: ACUTE RESPIRATORY DISTRESS SYNDROME
     Dosage: 40 MG ORALLY/PG TIMES ONE ; 20 MG ORALLY/PG QD
     Route: 048
     Dates: start: 20101108
  4. CRESTOR [Suspect]
     Indication: SEPSIS
     Dosage: 40 MG ORALLY/PG TIMES ONE ; 20 MG ORALLY/PG QD
     Route: 048
     Dates: start: 20101108
  5. INSULIN [Concomitant]
  6. LEVOXACIN [Concomitant]
  7. CLINDAMYCIN [Concomitant]
  8. ALBUTEROL [Concomitant]
  9. CLONAZEPAM [Concomitant]
  10. SENNA [Concomitant]
  11. DOCUSATE [Concomitant]
  12. THIAMINE [Concomitant]
  13. ERCALCIFEROL [Concomitant]
  14. HALOPERIDOL [Concomitant]
  15. POTASSIUM CHLORIDE [Concomitant]
  16. ENOXAPARIN SODIUM [Concomitant]
  17. OMEPRAZOLE [Concomitant]
  18. GLUTAMINE [Concomitant]
  19. VANCOMYCIN [Concomitant]
  20. PIPPERCILLIN/TAZOBACTAM [Concomitant]
  21. HEPARIN [Concomitant]
  22. LASIX [Concomitant]
  23. HYDROCORTISONE [Concomitant]
  24. ACETAMINOPHEN [Concomitant]
  25. ALTAPLASE [Concomitant]
  26. PRESEDEX [Concomitant]
  27. FENTANY [Concomitant]
  28. MG504 [Concomitant]
  29. XIGRIS [Concomitant]
  30. VASOPRESSIN [Concomitant]
  31. DOBUTAMINE [Concomitant]
  32. NOREPINEPHRINE [Concomitant]

REACTIONS (3)
  - DIALYSIS [None]
  - NEUROLEPTIC MALIGNANT SYNDROME [None]
  - RENAL FAILURE ACUTE [None]
